FAERS Safety Report 13341071 (Version 1)
Quarter: 2017Q1

REPORT INFORMATION
  Report Type: Spontaneous
  Country: CH (occurrence: CH)
  Receive Date: 20170316
  Receipt Date: 20170316
  Transmission Date: 20170428
  Serious: Yes (Other)
  Sender: FDA-Public Use
  Company Number: CH-NODEN PHARMA DAC-NOD-2017-000037

PATIENT
  Age: 38 Year
  Sex: Male

DRUGS (2)
  1. RASILEZ [Suspect]
     Active Substance: ALISKIREN
     Indication: PRODUCT USED FOR UNKNOWN INDICATION
     Dosage: UNK
     Route: 065
     Dates: start: 201701
  2. HARPAGOPHYTUM PROCUMBENS (NGX) [Suspect]
     Active Substance: HARPAGOPHYTUM PROCUMBENS ROOT
     Indication: PRODUCT USED FOR UNKNOWN INDICATION
     Dosage: UNK
     Route: 065
     Dates: start: 201701

REACTIONS (3)
  - Presyncope [Unknown]
  - Extrasystoles [Unknown]
  - Palpitations [Unknown]

NARRATIVE: CASE EVENT DATE: 20170216
